FAERS Safety Report 7338777-8 (Version None)
Quarter: 2011Q1

REPORT INFORMATION
  Report Type: 
  Country: None (occurrence: None)
  Receive Date: 20110308
  Receipt Date: 20110223
  Transmission Date: 20110831
  Serious: Yes (Other)
  Sender: FDA-Public Use
  Company Number: PHHY2011FR11029

PATIENT
  Sex: Male
  Weight: 92 kg

DRUGS (1)
  1. EVEROLIMUS [Suspect]
     Indication: RENAL CANCER METASTATIC
     Dosage: 10 MG, DAILY
     Route: 048
     Dates: start: 20101103, end: 20110111

REACTIONS (5)
  - LUNG DISORDER [None]
  - NEUTROPENIA [None]
  - COUGH [None]
  - ANAEMIA [None]
  - THROMBOCYTOPENIA [None]
